FAERS Safety Report 7668313-8 (Version None)
Quarter: 2011Q3

REPORT INFORMATION
  Report Type: 
  Country: None (occurrence: None)
  Receive Date: 20110808
  Receipt Date: 20110729
  Transmission Date: 20111222
  Serious: Yes (Other)
  Sender: FDA-Public Use
  Company Number: AR-AMGEN-ARGSP2010011718

PATIENT
  Age: 67 Year
  Sex: Male
  Weight: 95 kg

DRUGS (3)
  1. ENBREL [Suspect]
     Dosage: UNSPECIFIED DOSE EVERY 2 WKS
     Route: 058
     Dates: start: 20110101
  2. ENBREL [Suspect]
     Indication: RHEUMATOID ARTHRITIS
     Dosage: 25 MG, TWICE MONTHLY
     Route: 058
     Dates: start: 20060502, end: 20110101
  3. LEVOTHYROXINE SODIUM [Concomitant]
     Dosage: ONCE DAILY
     Route: 048
     Dates: start: 19700101

REACTIONS (2)
  - INTESTINAL POLYP [None]
  - WHITE BLOOD CELL COUNT DECREASED [None]
